FAERS Safety Report 11968667 (Version 1)
Quarter: 2016Q1

REPORT INFORMATION
  Report Type: Spontaneous
  Country: IL (occurrence: IL)
  Receive Date: 20160128
  Receipt Date: 20160128
  Transmission Date: 20160526
  Serious: Yes (Other)
  Sender: FDA-Public Use
  Company Number: IL-PAR PHARMACEUTICAL COMPANIES-2016SCPR015111

PATIENT

DRUGS (2)
  1. ADRENALIN [Suspect]
     Active Substance: EPINEPHRINE
     Indication: PRODUCT USED FOR UNKNOWN INDICATION
     Dosage: 1 MG, SINGLE
  2. ANAESTHETICS [Concomitant]
     Active Substance: UNSPECIFIED INGREDIENT
     Indication: ANAESTHESIA
     Dosage: UNK, UNKNOWN
     Route: 065

REACTIONS (2)
  - Drug administration error [Unknown]
  - Cardiomyopathy [Recovered/Resolved]
